FAERS Safety Report 6406900-5 (Version None)
Quarter: 2009Q4

REPORT INFORMATION
  Report Type: 
  Country: None (occurrence: None)
  Receive Date: 20091020
  Receipt Date: 20091016
  Transmission Date: 20100525
  Serious: Yes (Life-Threatening, Hospitalization)
  Sender: FDA-Public Use
  Company Number: US-ASTRAZENECA-2009SE20723

PATIENT
  Age: 19112 Day
  Sex: Female

DRUGS (6)
  1. SEROQUEL [Suspect]
     Indication: BIPOLAR I DISORDER
     Route: 048
  2. SEROQUEL [Suspect]
     Dosage: 12 G ONCE
     Route: 048
     Dates: start: 20091014, end: 20091014
  3. TRAZODONE HCL [Concomitant]
  4. TOPAMAX [Concomitant]
  5. CITALOPRAM HYDROBROMIDE [Concomitant]
  6. LAMOTRIGINE [Concomitant]

REACTIONS (3)
  - DYSKINESIA [None]
  - DYSPNOEA [None]
  - INTENTIONAL OVERDOSE [None]
